FAERS Safety Report 4364991-X (Version None)
Quarter: 2004Q2

REPORT INFORMATION
  Report Type: 
  Country: None (occurrence: None)
  Receive Date: 20040524
  Receipt Date: 20040524
  Transmission Date: 20050107
  Serious: Yes (Other)
  Sender: FDA-Public Use
  Company Number: None

PATIENT
  Age: 26 Year
  Sex: Male
  Weight: 117.028 kg

DRUGS (4)
  1. SOTALOL HCL [Suspect]
     Indication: ATRIAL FIBRILLATION
     Dosage: BID ORAL
     Route: 048
  2. SOTALOL HCL [Suspect]
     Indication: VENTRICULAR FIBRILLATION
     Dosage: BID ORAL
     Route: 048
  3. VERAPAMIL(VERELAN) [Concomitant]
  4. COUMADIN [Concomitant]

REACTIONS (2)
  - ARRHYTHMIA [None]
  - NAUSEA [None]
